FAERS Safety Report 7460581-0 (Version None)
Quarter: 2011Q2

REPORT INFORMATION
  Report Type: 
  Country: None (occurrence: None)
  Receive Date: 20110505
  Receipt Date: 20110427
  Transmission Date: 20111010
  Serious: Yes (Hospitalization, Other)
  Sender: FDA-Public Use
  Company Number: CO-PFIZER INC-CO-WYE-H17954710

PATIENT
  Age: 61 Year
  Sex: Female

DRUGS (10)
  1. METFORAL [Concomitant]
     Route: 065
  2. CALCITRIOL [Concomitant]
     Route: 065
  3. GLIBENCLAMIDE [Concomitant]
     Route: 065
  4. LOVASTATIN [Concomitant]
  5. RAPAMUNE [Suspect]
     Indication: PROPHYLAXIS AGAINST TRANSPLANT REJECTION
     Dosage: 1.0 MG, 1X/DAY
     Route: 048
     Dates: start: 20050101, end: 20100701
  6. CALCIUM CARBONATE [Concomitant]
  7. SPIRONOLACTONE [Concomitant]
  8. ACETYLSALICYLIC ACID [Concomitant]
     Route: 065
  9. PREDNISOLONE [Concomitant]
     Dosage: UNK
     Dates: start: 20050101
  10. RAPAMUNE [Suspect]
     Dosage: 1.0 MG, 5X/WK
     Route: 048
     Dates: start: 20100701

REACTIONS (2)
  - BLOOD GLUCOSE INCREASED [None]
  - SKIN CANCER [None]
